FAERS Safety Report 5761587-X (Version None)
Quarter: 2008Q2

REPORT INFORMATION
  Report Type: 
  Country: None (occurrence: None)
  Receive Date: 20080606
  Receipt Date: 20080527
  Transmission Date: 20081010
  Serious: Yes (Hospitalization, Other)
  Sender: FDA-Public Use
  Company Number: US-PFIZER INC-2006101170

PATIENT
  Sex: Female
  Weight: 69.4 kg

DRUGS (2)
  1. CELEBREX [Suspect]
     Indication: BACK PAIN
  2. BEXTRA [Suspect]
     Indication: BACK PAIN

REACTIONS (1)
  - CAROTID ARTERY STENOSIS [None]
